FAERS Safety Report 7441630-2 (Version None)
Quarter: 2011Q2

REPORT INFORMATION
  Report Type: 
  Country: None (occurrence: None)
  Receive Date: 20110420
  Receipt Date: 20110414
  Transmission Date: 20111010
  Serious: Yes (Death)
  Sender: FDA-Public Use
  Company Number: 2008-183584-NL

PATIENT
  Age: 27 Year
  Sex: Female
  Weight: 120.7 kg

DRUGS (1)
  1. NUVARING [Suspect]
     Indication: CONTRACEPTION
     Dosage: 1 DF; VAG
     Route: 067
     Dates: start: 20060301, end: 20061001

REACTIONS (11)
  - CYSTITIS [None]
  - ARTHRALGIA [None]
  - AGGRESSION [None]
  - EPISTAXIS [None]
  - APNOEA [None]
  - DEEP VEIN THROMBOSIS [None]
  - FALL [None]
  - DIZZINESS [None]
  - DEPRESSED LEVEL OF CONSCIOUSNESS [None]
  - CARDIAC ARREST [None]
  - PULMONARY EMBOLISM [None]
